FAERS Safety Report 5491587-9 (Version None)
Quarter: 2007Q4

REPORT INFORMATION
  Report Type: 
  Country: None (occurrence: None)
  Receive Date: 20071018
  Receipt Date: 20071018
  Transmission Date: 20080405
  Serious: Yes (Hospitalization)
  Sender: FDA-Public Use
  Company Number: None

PATIENT
  Age: 42 Year
  Sex: Female
  Weight: 43.6 kg

DRUGS (7)
  1. TACROLIMUS [Suspect]
     Indication: IMMUNOSUPPRESSION
     Dosage: 2 MG PO BID
     Route: 048
     Dates: start: 20070513, end: 20070625
  2. HYDROMORPHONE HCL [Concomitant]
  3. FENTANYL TRANSDERMAL SYSTEM [Concomitant]
  4. DAPSONE [Concomitant]
  5. MGO [Concomitant]
  6. MESALAMINE [Concomitant]
  7. OMEPRAZOLE [Concomitant]

REACTIONS (6)
  - BLOOD CREATININE INCREASED [None]
  - DIARRHOEA [None]
  - DIZZINESS [None]
  - DRUG LEVEL INCREASED [None]
  - NAUSEA [None]
  - VISION BLURRED [None]
